FAERS Safety Report 4896797-7 (Version None)
Quarter: 2005Q4

REPORT INFORMATION
  Report Type: 
  Country: None (occurrence: None)
  Receive Date: 20051223
  Receipt Date: 20050921
  Transmission Date: 20060501
  Serious: Yes (Hospitalization, Other)
  Sender: FDA-Public Use
  Company Number: 216404

PATIENT
  Age: 54 Year
  Sex: Female
  Weight: 39.5 kg

DRUGS (6)
  1. AVASTIN [Suspect]
     Indication: COLORECTAL CANCER METASTATIC
     Dosage: 5 MG/KG, Q3W, INTRAVENOUS
     Route: 042
     Dates: start: 20050401, end: 20050707
  2. CAPECITABINE (CAPECITABINE) [Concomitant]
  3. OXALIPLATIN (OXALIPLATIN) [Concomitant]
  4. MEGACE [Concomitant]
  5. OXYCODONE (OXYCODONE) [Concomitant]
  6. OXYCONTIN [Concomitant]

REACTIONS (1)
  - CARDIAC FAILURE CONGESTIVE [None]
